FAERS Safety Report 8112767-X (Version None)
Quarter: 2012Q1

REPORT INFORMATION
  Report Type: 
  Country: None (occurrence: None)
  Receive Date: 20120203
  Receipt Date: 20120202
  Transmission Date: 20120608
  Serious: Yes (Hospitalization)
  Sender: FDA-Public Use
  Company Number: IT-BAYER-2012-010870

PATIENT

DRUGS (2)
  1. NEXAVAR [Suspect]
     Route: 048
  2. NEXAVAR [Suspect]
     Indication: HEPATIC NEOPLASM MALIGNANT
     Dosage: DAILY DOSE 800 MG
     Route: 048
     Dates: start: 20110330, end: 20110621

REACTIONS (3)
  - PYREXIA [None]
  - HEPATIC FUNCTION ABNORMAL [None]
  - CONDITION AGGRAVATED [None]
